FAERS Safety Report 8007410-4 (Version None)
Quarter: 2011Q4

REPORT INFORMATION
  Report Type: 
  Country: None (occurrence: None)
  Receive Date: 20111121
  Receipt Date: 20111114
  Transmission Date: 20120403
  Serious: Yes (Other)
  Sender: FDA-Public Use
  Company Number: 2011028314

PATIENT
  Age: 50 Year
  Sex: Female
  Weight: 102.5129 kg

DRUGS (50)
  1. HIZENTRA [Suspect]
     Indication: IMMUNODEFICIENCY COMMON VARIABLE
     Dosage: 4 GM 20 ML VIAL SUBCUTANEOUS
     Route: 058
     Dates: start: 20110817
  2. LIDODERM [Concomitant]
  3. VITAMIN D [Concomitant]
  4. MAXALT MLT (RIZATRIPTAN BENZOATE) [Concomitant]
  5. METFORMIN HCL [Concomitant]
  6. VITAMIN D [Concomitant]
  7. HIZENTRA [Suspect]
     Indication: IMMUNODEFICIENCY COMMON VARIABLE
     Dosage: 4 GM 10 ML VIAL SUBCUTANEOUS
     Route: 058
  8. HIZENTRA [Suspect]
     Indication: IMMUNODEFICIENCY COMMON VARIABLE
     Dosage: SUBCUTANEOUS
     Route: 058
  9. NEOSTIGMINE (NEOSTIGMINE) [Concomitant]
  10. KLONOPIN [Concomitant]
  11. RESTASIS [Concomitant]
  12. PULMICORT [Concomitant]
  13. TESSALON [Concomitant]
  14. BL RANITIDINE (RANITIDINE) [Concomitant]
  15. PREDNISONE TAB [Concomitant]
  16. TRIAMTERENE HCTZ (DYAZIDE) [Concomitant]
  17. RELPAX [Concomitant]
  18. COUMADIN [Concomitant]
  19. PREVACID [Concomitant]
  20. HIZENTRA [Suspect]
     Indication: IMMUNODEFICIENCY COMMON VARIABLE
     Dosage: SUBCUTANEOUS
     Route: 058
     Dates: start: 20101009
  21. HIZENTRA [Suspect]
     Indication: IMMUNODEFICIENCY COMMON VARIABLE
     Dosage: 4 GM 20 ML VIAL; IN 3 SITES OVER 1-2 HOURS SUBCUTANEOUS
     Route: 058
     Dates: start: 20101007
  22. HIZENTRA [Suspect]
     Indication: IMMUNODEFICIENCY COMMON VARIABLE
     Dosage: SUBCUTANEOUS
     Route: 058
  23. ZOFRAN [Concomitant]
  24. CELEBREX [Concomitant]
  25. AZATHIOPRINE [Concomitant]
  26. COMBIVENT [Concomitant]
  27. BL MAGNESIUM (MAGNESIUM) [Concomitant]
  28. PROVIGIL [Concomitant]
  29. HYDROXYZINE [Concomitant]
  30. MUCINEX [Concomitant]
  31. ZOLPIDEM [Concomitant]
  32. PULMICORT [Concomitant]
  33. HIZENTRA [Suspect]
     Indication: BLOOD IMMUNOGLOBULIN A
     Dosage: 6 G 1X/WEEK, 2 GM 10 ML VIAL; 30 ML IN 1 HOUR 5 MINUTES SUBCUTANEOUS
     Route: 058
  34. KEPPRA [Concomitant]
  35. ALAVERT [Concomitant]
  36. INNOPRAN XL [Concomitant]
  37. DUONEB [Concomitant]
  38. BACLOFEN [Concomitant]
  39. HIZENTRA [Suspect]
     Indication: IMMUNODEFICIENCY COMMON VARIABLE
     Dosage: 2 GM 10 ML VIAL; 3 SITES OVER 1-2 HOURS SUBCUTANEOUS
     Route: 058
     Dates: start: 20101007
  40. HIZENTRA [Suspect]
     Indication: IMMUNODEFICIENCY COMMON VARIABLE
     Dosage: SUBCUTANEOUS
     Route: 058
  41. VICODIN [Concomitant]
  42. LORATADINE [Concomitant]
  43. EVOXAC [Concomitant]
  44. NORCO [Concomitant]
  45. PERCOCET [Concomitant]
  46. HIZENTRA [Suspect]
     Indication: IMMUNODEFICIENCY COMMON VARIABLE
     Dosage: 6 G 1X/WEEK, 2 GM 10 ML VIAL; 2 SITES SUBCUTANEOUS
     Route: 058
     Dates: start: 20110817
  47. PLAQUENIL [Concomitant]
  48. SEROQUEL [Concomitant]
  49. BALANCE B (BIO-ORGANICS BALANCED B) [Concomitant]
  50. TRAMADOL HCL [Concomitant]

REACTIONS (5)
  - SINUSITIS [None]
  - BRONCHITIS [None]
  - PNEUMONIA [None]
  - STREPTOCOCCAL INFECTION [None]
  - HIP ARTHROPLASTY [None]
